FAERS Safety Report 6853914-7 (Version None)
Quarter: 2010Q3

REPORT INFORMATION
  Report Type: 
  Country: None (occurrence: None)
  Receive Date: 20100717
  Receipt Date: 20071220
  Transmission Date: 20110219
  Serious: No
  Sender: FDA-Public Use
  Company Number: US-PFIZER INC-2007108411

PATIENT
  Sex: Female
  Weight: 64.5 kg

DRUGS (5)
  1. CHANTIX [Suspect]
     Indication: SMOKING CESSATION THERAPY
     Dosage: EVERY DAY
     Dates: start: 20070101, end: 20071219
  2. COPAXONE [Concomitant]
     Indication: MULTIPLE SCLEROSIS
  3. PREMARIN [Concomitant]
  4. LOPRESSOR [Concomitant]
  5. MULTI-VITAMINS [Concomitant]

REACTIONS (8)
  - ABNORMAL BEHAVIOUR [None]
  - ANXIETY [None]
  - DEPRESSION [None]
  - INCORRECT DOSE ADMINISTERED [None]
  - INSOMNIA [None]
  - MEMORY IMPAIRMENT [None]
  - PALPITATIONS [None]
  - PANIC ATTACK [None]
